FAERS Safety Report 4952222-9 (Version None)
Quarter: 2006Q1

REPORT INFORMATION
  Report Type: 
  Country: None (occurrence: None)
  Receive Date: 20060320
  Receipt Date: 20060302
  Transmission Date: 20060701
  Serious: Yes (Hospitalization, Other)
  Sender: FDA-Public Use
  Company Number: WAES 0603USA00618

PATIENT
  Age: 6 Year
  Sex: Female

DRUGS (6)
  1. DECADRON [Suspect]
     Indication: INTRACRANIAL PRESSURE INCREASED
     Dosage: 2 MG/AM PO; SEE IMAGE
     Route: 048
     Dates: start: 20060104
  2. DECADRON [Suspect]
     Indication: INTRACRANIAL PRESSURE INCREASED
     Dosage: 2 MG/AM PO; SEE IMAGE
     Route: 048
     Dates: start: 20060106
  3. TEMODAL [Suspect]
     Indication: BRAIN STEM GLIOMA
     Dosage: 65 MG/DAILY PO; SEE IMAGE
     Route: 048
     Dates: start: 20060109, end: 20060123
  4. TEMODAL [Suspect]
     Indication: BRAIN STEM GLIOMA
     Dosage: 65 MG/DAILY PO; SEE IMAGE
     Route: 048
     Dates: start: 20051109
  5. TEMODAL [Suspect]
     Indication: BRAIN STEM GLIOMA
     Dosage: 65 MG/DAILY PO; SEE IMAGE
     Route: 048
     Dates: start: 20060130
  6. SEPTRA [Concomitant]

REACTIONS (19)
  - ABDOMINAL PAIN [None]
  - ABNORMAL BEHAVIOUR [None]
  - CEREBRAL VENTRICLE DILATATION [None]
  - COAGULOPATHY [None]
  - DRUG TOXICITY [None]
  - DYSSTASIA [None]
  - ERYTHEMA [None]
  - HEADACHE [None]
  - HYDROCEPHALUS [None]
  - INCISION SITE COMPLICATION [None]
  - LETHARGY [None]
  - LYMPHOPENIA [None]
  - MALIGNANT NEOPLASM PROGRESSION [None]
  - PSYCHOTIC DISORDER [None]
  - PYREXIA [None]
  - SELF INJURIOUS BEHAVIOUR [None]
  - SHUNT INFECTION [None]
  - SHUNT OCCLUSION [None]
  - SOMNOLENCE [None]
